FAERS Safety Report 16969353 (Version 1)
Quarter: 2019Q4

REPORT INFORMATION
  Report Type: Spontaneous
  Country: DE (occurrence: DE)
  Receive Date: 20191029
  Receipt Date: 20191029
  Transmission Date: 20200122
  Serious: Yes (Life-Threatening, Hospitalization)
  Sender: FDA-Public Use
  Company Number: DE-SCIEGEN PHARMACEUTICALS INC-2019SCILIT00301

PATIENT
  Age: 43 Year
  Sex: Female

DRUGS (6)
  1. BUDESONIDE. [Concomitant]
     Active Substance: BUDESONIDE
  2. FORMOTEROL [Concomitant]
     Active Substance: FORMOTEROL
  3. IBUPROFEN. [Suspect]
     Active Substance: IBUPROFEN
  4. TRICYCLIC ANTIDEPRESSANTS [Suspect]
     Active Substance: UNSPECIFIED INGREDIENT
  5. QUETIAPINE. [Suspect]
     Active Substance: QUETIAPINE
  6. TIOTROPIUM [Concomitant]
     Active Substance: TIOTROPIUM

REACTIONS (2)
  - Toxicity to various agents [Recovered/Resolved]
  - Suicide attempt [Recovered/Resolved]
